FAERS Safety Report 24385651 (Version 1)
Quarter: 2024Q4

REPORT INFORMATION
  Report Type: Spontaneous
  Country: US (occurrence: US)
  Receive Date: 20241001
  Receipt Date: 20241001
  Transmission Date: 20250115
  Serious: Yes (Death, Other)
  Sender: ORGANON
  Company Number: US-ORGANON-O2409USA002012

PATIENT
  Age: 84 Year
  Sex: Male

DRUGS (18)
  1. SINGULAIR [Suspect]
     Active Substance: MONTELUKAST SODIUM
     Dosage: 1 TABLET BY MOUTH NIGHTLY
     Route: 048
  2. SINEMET CR [Suspect]
     Active Substance: CARBIDOPA\LEVODOPA
     Dosage: 1 TABLET, TID
     Route: 048
  3. NORVASC [Suspect]
     Active Substance: AMLODIPINE BESYLATE
     Dosage: 1 TABLET QD
     Route: 048
  4. APRESOLINE HYDROCHLORIDE [Suspect]
     Active Substance: HYDRALAZINE HYDROCHLORIDE
     Dosage: 1 TABLET, BID MORNING AND EVENING
     Route: 048
  5. APRESOLINE HYDROCHLORIDE [Suspect]
     Active Substance: HYDRALAZINE HYDROCHLORIDE
     Dosage: 1 TABLET, QD WITH LUNCH
     Route: 048
  6. BUSPAR [Suspect]
     Active Substance: BUSPIRONE HYDROCHLORIDE
     Indication: Anxiety
     Dosage: 1 TABLET, BID AS NEEDED
     Route: 048
  7. STIOLTO RESPIMAT [Suspect]
     Active Substance: OLODATEROL HYDROCHLORIDE\TIOTROPIUM BROMIDE MONOHYDRATE
     Dosage: 1 PUFF QD
  8. XARELTO [Suspect]
     Active Substance: RIVAROXABAN
     Dosage: 1 TABLET, BID FOR 30 DAYS
     Route: 048
  9. LIPITOR [Suspect]
     Active Substance: ATORVASTATIN CALCIUM
     Dosage: 1 TABLET, QD NIGHTLY
     Route: 048
  10. FLOMAX [Suspect]
     Active Substance: TAMSULOSIN HYDROCHLORIDE
     Dosage: 1 CAPSULE, QD
     Route: 048
  11. JANUVIA [Suspect]
     Active Substance: SITAGLIPTIN PHOSPHATE
     Indication: Diabetes mellitus
     Dosage: 1 TABLET, QD EVERY MORNING
     Route: 048
  12. GLUCOPHAGE XR [Suspect]
     Active Substance: METFORMIN HYDROCHLORIDE
     Dosage: 1 TABLET, QD WITH BREAKFAST
     Route: 048
  13. ARICEPT [Suspect]
     Active Substance: DONEPEZIL HYDROCHLORIDE
     Dosage: 1 TABLET, QD EVERY NIGHT
     Route: 048
  14. ASPIRIN [Suspect]
     Active Substance: ASPIRIN
     Dosage: 1 CAPSULE, QD
     Route: 048
  15. IRON [Suspect]
     Active Substance: IRON
     Dosage: 1 TABLET QD
     Route: 048
  16. FERROUS SULFATE [Suspect]
     Active Substance: FERROUS SULFATE
     Dosage: 1 TABLET, QD
     Route: 048
  17. MULTIVITAMIN WITH FLUORIDE [Suspect]
     Active Substance: .ALPHA.-TOCOPHEROL\.ALPHA.-TOCOPHEROL ACETATE\.ALPHA.-TOCOPHEROL ACETATE, DL-\ASCORBIC ACID\CHOLECAL
     Dosage: 1 TABLET, QD
     Route: 048
  18. CHOLECALCIFEROL [Suspect]
     Active Substance: CHOLECALCIFEROL
     Dosage: 1 TABLET, QD D3 (STRENGTH: 1000 U)
     Route: 048

REACTIONS (1)
  - Death [Fatal]

NARRATIVE: CASE EVENT DATE: 20240313
